FAERS Safety Report 18227015 (Version 1)
Quarter: 2020Q3

REPORT INFORMATION
  Report Type: Spontaneous
  Country: US (occurrence: US)
  Receive Date: 20200903
  Receipt Date: 20200903
  Transmission Date: 20201103
  Serious: Yes (Other)
  Sender: FDA-Public Use
  Company Number: US-PFIZER INC-2020340029

PATIENT
  Age: 50 Year
  Sex: Male

DRUGS (9)
  1. CAPLYTA [Interacting]
     Active Substance: LUMATEPERONE
     Indication: OBSESSIVE-COMPULSIVE DISORDER
  2. LISINOPRIL. [Interacting]
     Active Substance: LISINOPRIL
     Dosage: 20 MG, 1X/DAY
  3. CAPLYTA [Interacting]
     Active Substance: LUMATEPERONE
     Indication: SCHIZOPHRENIA
     Dosage: 42 MG, 1X/DAY
     Route: 048
     Dates: start: 20200729, end: 2020
  4. BENADRYL [Concomitant]
     Active Substance: DIPHENHYDRAMINE HYDROCHLORIDE
     Dosage: UNK
  5. LISINOPRIL. [Interacting]
     Active Substance: LISINOPRIL
     Indication: HYPERTENSION
     Dosage: 15 MG, 1X/DAY
  6. ADVIL PM [Suspect]
     Active Substance: DIPHENHYDRAMINE CITRATE\IBUPROFEN
     Indication: SLEEP DISORDER
     Dosage: UNK
     Dates: end: 2020
  7. CAPLYTA [Interacting]
     Active Substance: LUMATEPERONE
     Indication: SCHIZOAFFECTIVE DISORDER
     Dosage: 42 MG, 1X/DAY
     Route: 048
     Dates: start: 2020
  8. CAPLYTA [Interacting]
     Active Substance: LUMATEPERONE
     Indication: BIPOLAR DISORDER
  9. CAPLYTA [Interacting]
     Active Substance: LUMATEPERONE
     Indication: POST-TRAUMATIC STRESS DISORDER

REACTIONS (8)
  - Hypertension [Not Recovered/Not Resolved]
  - Headache [Not Recovered/Not Resolved]
  - Drug interaction [Unknown]
  - Diarrhoea [Unknown]
  - Peripheral swelling [Unknown]
  - Suicide attempt [Unknown]
  - Heart rate increased [Recovered/Resolved]
  - Hypoaesthesia oral [Unknown]

NARRATIVE: CASE EVENT DATE: 2020
